FAERS Safety Report 14690547 (Version 1)
Quarter: 2018Q1

REPORT INFORMATION
  Report Type: Spontaneous
  Country: SK (occurrence: SK)
  Receive Date: 20180328
  Receipt Date: 20180328
  Transmission Date: 20180509
  Serious: Yes (Other)
  Sender: FDA-Public Use
  Company Number: SK-BAUSCH-BL-2018-003935

PATIENT
  Age: 53 Year
  Sex: Female
  Weight: 102 kg

DRUGS (9)
  1. DAPAGLIFLOZIN. [Concomitant]
     Active Substance: DAPAGLIFLOZIN
     Indication: PRODUCT USED FOR UNKNOWN INDICATION
     Route: 065
  2. GLICLAZIDE [Suspect]
     Active Substance: GLICLAZIDE
     Route: 048
     Dates: start: 201504
  3. TOUJEO [Suspect]
     Active Substance: INSULIN GLARGINE
     Dosage: DOSE:18 UNIT(S) DAILY
     Route: 058
  4. METFORMIN HYDROCHLORIDE. [Suspect]
     Active Substance: METFORMIN HYDROCHLORIDE
     Indication: TYPE 2 DIABETES MELLITUS
     Route: 065
     Dates: start: 201510, end: 201712
  5. TOUJEO [Suspect]
     Active Substance: INSULIN GLARGINE
     Indication: TYPE 2 DIABETES MELLITUS
     Dosage: DOSE:8 UNIT(S) DAILY
     Route: 058
  6. TOUJEO [Suspect]
     Active Substance: INSULIN GLARGINE
     Dosage: DOSE:12 UNIT(S) DAILY
     Route: 058
  7. GLICLAZIDE [Suspect]
     Active Substance: GLICLAZIDE
     Indication: TYPE 2 DIABETES MELLITUS
     Route: 048
     Dates: end: 201712
  8. ATORVASTATIN [Concomitant]
     Active Substance: ATORVASTATIN
     Indication: PRODUCT USED FOR UNKNOWN INDICATION
     Route: 048
     Dates: start: 201703
  9. VERAPAMIL, TRANDOLAPRIL [Concomitant]
     Indication: HYPERTENSION
     Route: 048
     Dates: start: 200703

REACTIONS (3)
  - Blood bilirubin increased [Unknown]
  - Weight increased [Not Recovered/Not Resolved]
  - Glycosylated haemoglobin increased [Recovered/Resolved]

NARRATIVE: CASE EVENT DATE: 201609
